FAERS Safety Report 25606992 (Version 1)
Quarter: 2025Q3

REPORT INFORMATION
  Report Type: Spontaneous
  Country: US (occurrence: None)
  Receive Date: 20250725
  Receipt Date: 20250725
  Transmission Date: 20251021
  Serious: Yes (Other)
  Sender: FDA-CTU
  Company Number: None

PATIENT
  Age: 46 Year
  Sex: Female
  Weight: 81.9 kg

DRUGS (2)
  1. TIVICAY [Suspect]
     Active Substance: DOLUTEGRAVIR SODIUM
     Indication: Prophylaxis
     Dosage: FREQUENCY : DAILY;?
     Route: 048
     Dates: start: 20250722, end: 20250722
  2. EMTRICITABINE\TENOFOVIR DISOPROXIL FUMARATE [Suspect]
     Active Substance: EMTRICITABINE\TENOFOVIR DISOPROXIL FUMARATE
     Indication: Prophylaxis
     Dosage: FREQUENCY : DAILY;?
     Route: 048
     Dates: start: 20250722, end: 20250722

REACTIONS (6)
  - Pain in jaw [None]
  - Toothache [None]
  - Ear discomfort [None]
  - Headache [None]
  - Eye pain [None]
  - Pain of skin [None]

NARRATIVE: CASE EVENT DATE: 20250722
